FAERS Safety Report 4676925-9 (Version None)
Quarter: 2005Q2

REPORT INFORMATION
  Report Type: 
  Country: None (occurrence: None)
  Receive Date: 20050527
  Receipt Date: 20050510
  Transmission Date: 20051028
  Serious: Yes (Other)
  Sender: FDA-Public Use
  Company Number: US-ABBOTT-05P-163-0300176-00

PATIENT
  Age: 28 Year
  Sex: Female

DRUGS (7)
  1. NORVIR [Suspect]
     Indication: HIV INFECTION
     Route: 048
     Dates: start: 20050208
  2. LAMIVUDINE + ZIDOVUDINE [Suspect]
     Indication: HIV INFECTION
     Route: 048
     Dates: start: 20050208
  3. LEXIVA [Suspect]
     Indication: HIV INFECTION
     Route: 048
     Dates: start: 20050208
  4. VIREAD [Suspect]
     Indication: HIV INFECTION
     Dates: start: 20050208
  5. LAMIVUDINE + ZIDOVUDINE [Concomitant]
     Route: 048
     Dates: start: 20050208
  6. LEXIVA [Concomitant]
     Route: 048
     Dates: start: 20050208
  7. VIREAD [Concomitant]
     Route: 048
     Dates: start: 20050208

REACTIONS (2)
  - SEPSIS [None]
  - SYPHILIS [None]
